FAERS Safety Report 11396659 (Version 2)
Quarter: 2015Q4

REPORT INFORMATION
  Report Type: Spontaneous
  Country: US (occurrence: US)
  Receive Date: 20150819
  Receipt Date: 20151016
  Transmission Date: 20160304
  Serious: No
  Sender: FDA-Public Use
  Company Number: US-GLAXOSMITHKLINE-US2015110252

PATIENT
  Age: 65 Year
  Sex: Female
  Weight: 113.38 kg

DRUGS (1)
  1. BREO ELLIPTA [Suspect]
     Active Substance: FLUTICASONE FUROATE\VILANTEROL TRIFENATATE
     Indication: BLOOD GLUCOSE INCREASED
     Dosage: UNK, QD
     Route: 055
     Dates: start: 20150313, end: 20150419

REACTIONS (2)
  - Product use issue [Unknown]
  - Blood glucose abnormal [Recovered/Resolved]

NARRATIVE: CASE EVENT DATE: 20150313
